FAERS Safety Report 8613489 (Version 2)
Quarter: 2013Q2

REPORT INFORMATION
  Report Type: Spontaneous
  Country: US (occurrence: US)
  Receive Date: 20120614
  Receipt Date: 20130617
  Transmission Date: 20140414
  Serious: Yes (Hospitalization)
  Sender: FDA-Public Use
  Company Number: US-ASTRAZENECA-2012SE36191

PATIENT
  Age: 49 Year
  Sex: Female

DRUGS (14)
  1. NEXIUM [Suspect]
     Indication: GASTROOESOPHAGEAL REFLUX DISEASE
     Dosage: ONCE A DAY
     Route: 048
  2. NEXIUM [Suspect]
     Indication: GASTROOESOPHAGEAL REFLUX DISEASE
     Route: 048
     Dates: start: 20051117
  3. ACIPHEX [Concomitant]
  4. ROLAIDS [Concomitant]
     Indication: DYSPEPSIA
  5. LEVOTHYROXINE [Concomitant]
     Route: 048
     Dates: start: 20070112
  6. LISINOPRIL HCTZ [Concomitant]
     Dosage: 10/12.5 MG
     Dates: start: 20100409
  7. PROMETHAZINE [Concomitant]
     Route: 048
     Dates: start: 20071210
  8. ESTRADIOL [Concomitant]
     Route: 048
     Dates: start: 20071026
  9. GABAPENTIN [Concomitant]
     Route: 048
     Dates: start: 20070112
  10. SINGULAIR [Concomitant]
     Route: 048
     Dates: start: 20030225
  11. PREVACID [Concomitant]
     Indication: GASTRIC DISORDER
     Route: 048
     Dates: start: 20020905
  12. WELLBUTRIN [Concomitant]
     Route: 048
     Dates: start: 20020905
  13. ALLOPURINOL [Concomitant]
     Route: 048
     Dates: start: 20021017
  14. METHYLPREDNISOLONE [Concomitant]
     Dates: start: 20080830

REACTIONS (6)
  - Gout [Unknown]
  - Spinal osteoarthritis [Unknown]
  - Arthropathy [Unknown]
  - Osteoporosis [Unknown]
  - Multiple fractures [Unknown]
  - Arthritis [Unknown]
